FAERS Safety Report 8988430 (Version 1)
Quarter: 2012Q4

REPORT INFORMATION
  Report Type: Spontaneous
  Country: US (occurrence: None)
  Receive Date: 20121221
  Receipt Date: 20121221
  Transmission Date: 20130627
  Serious: Yes (Hospitalization)
  Sender: FDA-Public Use
  Company Number: None

PATIENT
  Age: 69 Year
  Sex: Female
  Weight: 72.58 kg

DRUGS (1)
  1. CLONIDINE [Suspect]
     Dosage: 0.2mg   tid  Occlusive dressing
     Route: 046
     Dates: start: 20121111, end: 20121215

REACTIONS (1)
  - Drug ineffective [None]
